FAERS Safety Report 6150250-1 (Version None)
Quarter: 2009Q2

REPORT INFORMATION
  Report Type: 
  Country: None (occurrence: None)
  Receive Date: 20090409
  Receipt Date: 20090330
  Transmission Date: 20091009
  Serious: Yes (Other)
  Sender: FDA-Public Use
  Company Number: CZ-PFIZER INC-2009194786

PATIENT

DRUGS (3)
  1. CAMPTOSAR [Suspect]
     Indication: RECTAL CANCER
     Dosage: 240 MG/M2, DAY 1, EVERY 21 DAYS
     Route: 042
  2. XELODA [Suspect]
     Indication: RECTAL CANCER
     Dosage: 1000 MG/M2, DAYS 2-15, EVERY 21 DAYS
     Route: 048
  3. XELODA [Suspect]
     Dosage: 825 MG/M2

REACTIONS (1)
  - PALMAR-PLANTAR ERYTHRODYSAESTHESIA SYNDROME [None]
